FAERS Safety Report 22251781 (Version 3)
Quarter: 2023Q2

REPORT INFORMATION
  Report Type: Report from Study
  Country: US (occurrence: US)
  Receive Date: 20230425
  Receipt Date: 20230524
  Transmission Date: 20230721
  Serious: Yes (Other)
  Sender: FDA-Public Use
  Company Number: US-JAZZ PHARMACEUTICALS-2023-US-008751

PATIENT
  Sex: Female

DRUGS (4)
  1. XYWAV [Suspect]
     Active Substance: CALCIUM OXYBATE\MAGNESIUM OXYBATE\POTASSIUM OXYBATE\SODIUM OXYBATE
     Indication: Narcolepsy
     Dosage: 2.25 GRAM, BID
     Dates: start: 20230413
  2. XYWAV [Suspect]
     Active Substance: CALCIUM OXYBATE\MAGNESIUM OXYBATE\POTASSIUM OXYBATE\SODIUM OXYBATE
     Indication: Cataplexy
     Dosage: 4.5 GRAM, BID
  3. XYWAV [Suspect]
     Active Substance: CALCIUM OXYBATE\MAGNESIUM OXYBATE\POTASSIUM OXYBATE\SODIUM OXYBATE
     Indication: Somnolence
  4. METHYLPHENIDATE HYDROCHLORIDE [Suspect]
     Active Substance: METHYLPHENIDATE HYDROCHLORIDE
     Indication: Product used for unknown indication

REACTIONS (17)
  - Dementia [Unknown]
  - Delirium [Unknown]
  - Autoimmune disorder [Unknown]
  - Reynold^s syndrome [Unknown]
  - Brain fog [Unknown]
  - Seasonal allergy [Unknown]
  - Oxygen saturation decreased [Unknown]
  - Somnambulism [Unknown]
  - Anger [Unknown]
  - Vomiting [Unknown]
  - Agitation [Unknown]
  - Nausea [Recovered/Resolved]
  - Vertigo [Unknown]
  - Dizziness [Unknown]
  - Ear infection [Unknown]
  - Panic disorder [Unknown]
  - Anxiety [Unknown]
